FAERS Safety Report 5832477-9 (Version None)
Quarter: 2008Q3

REPORT INFORMATION
  Report Type: 
  Country: None (occurrence: None)
  Receive Date: 20080804
  Receipt Date: 20080724
  Transmission Date: 20090109
  Serious: Yes (Death, Life-Threatening, Other)
  Sender: FDA-Public Use
  Company Number: GB-JNJFOC-20080602919

PATIENT
  Age: 8 Decade
  Sex: Female
  Weight: 32 kg

DRUGS (6)
  1. REMICADE [Suspect]
     Route: 042
  2. REMICADE [Suspect]
     Indication: RHEUMATOID ARTHRITIS
     Route: 042
  3. FOLIC ACID [Concomitant]
  4. METHOTREXATE [Concomitant]
  5. PARACETAMOL [Concomitant]
  6. RANITIDINE HCL [Concomitant]

REACTIONS (2)
  - BRONCHOPNEUMONIA [None]
  - MALNUTRITION [None]
